FAERS Safety Report 9694255 (Version 1)
Quarter: 2013Q4

REPORT INFORMATION
  Report Type: Spontaneous
  Country: US (occurrence: US)
  Receive Date: 20131118
  Receipt Date: 20131118
  Transmission Date: 20140711
  Serious: No
  Sender: FDA-Public Use
  Company Number: US-PFIZER INC-2013326326

PATIENT
  Age: 75 Year
  Sex: Male

DRUGS (4)
  1. NEURONTIN [Suspect]
     Indication: PERIPHERAL COLDNESS
     Dosage: UNK
  2. NEURONTIN [Suspect]
     Indication: FEELING HOT
  3. NEURONTIN [Suspect]
     Indication: TREMOR
  4. NEURONTIN [Suspect]
     Indication: PAIN

REACTIONS (2)
  - Drug ineffective for unapproved indication [Unknown]
  - Off label use [Unknown]
